FAERS Safety Report 12211956 (Version 1)
Quarter: 2016Q1

REPORT INFORMATION
  Report Type: Report from Study
  Country: US (occurrence: US)
  Receive Date: 20160325
  Receipt Date: 20160325
  Transmission Date: 20160526
  Serious: Yes (Hospitalization)
  Sender: FDA-Public Use
  Company Number: US-ALLERGAN-1651770US

PATIENT
  Age: 87 Year
  Sex: Female

DRUGS (1)
  1. HYDROCODONE BITARTRATE 7.5MG;ACETAMINOPHEN 325MG TAB [Suspect]
     Active Substance: ACETAMINOPHEN\HYDROCODONE BITARTRATE
     Indication: PRODUCT USED FOR UNKNOWN INDICATION
     Route: 048

REACTIONS (5)
  - Chronic respiratory failure [Recovered/Resolved]
  - Accidental overdose [Recovered/Resolved]
  - Encephalopathy [None]
  - Acute respiratory failure [None]
  - Toxic encephalopathy [Recovered/Resolved]
